FAERS Safety Report 11293597 (Version 2)
Quarter: 2015Q3

REPORT INFORMATION
  Report Type: Spontaneous
  Country: JP (occurrence: JP)
  Receive Date: 20150722
  Receipt Date: 20150825
  Transmission Date: 20151125
  Serious: Yes (Hospitalization)
  Sender: FDA-Public Use
  Company Number: JP-SA-2015SA103049

PATIENT
  Age: 52 Year
  Sex: Female
  Weight: 62 kg

DRUGS (6)
  1. SOLACET F [Concomitant]
     Route: 042
     Dates: start: 20130409, end: 20130412
  2. GASTER [Concomitant]
     Active Substance: FAMOTIDINE
     Route: 042
     Dates: start: 20130409, end: 20130411
  3. WYSTAL [Concomitant]
     Active Substance: CEFOPERAZONE SODIUM\SULBACTAM SODIUM
     Route: 042
     Dates: start: 20130409, end: 20130413
  4. FENTANYL. [Concomitant]
     Active Substance: FENTANYL
     Route: 042
     Dates: start: 20130410, end: 20130415
  5. CLEXANE [Suspect]
     Active Substance: ENOXAPARIN SODIUM
     Indication: EMBOLISM VENOUS
     Route: 058
     Dates: start: 20130412, end: 20130413
  6. GEMCITABINE [Concomitant]
     Active Substance: GEMCITABINE\GEMCITABINE HYDROCHLORIDE
     Indication: DUCTAL ADENOCARCINOMA OF PANCREAS

REACTIONS (8)
  - Haemoglobin decreased [Recovered/Resolved]
  - Arterial haemorrhage [Recovered/Resolved]
  - Bloody discharge [Recovered/Resolved]
  - Hypotension [Recovered/Resolved]
  - Intra-abdominal haemorrhage [Recovered/Resolved]
  - Tachycardia [Recovered/Resolved]
  - Aneurysm ruptured [Recovered/Resolved]
  - Abdominal discomfort [Recovered/Resolved]

NARRATIVE: CASE EVENT DATE: 20130412
